FAERS Safety Report 20372201 (Version 1)
Quarter: 2022Q1

REPORT INFORMATION
  Report Type: Spontaneous
  Country: FR (occurrence: FR)
  Receive Date: 20220124
  Receipt Date: 20220124
  Transmission Date: 20220424
  Serious: Yes (Hospitalization)
  Sender: FDA-Public Use
  Company Number: None

PATIENT
  Age: 77 Year
  Sex: Male

DRUGS (6)
  1. CERNEVIT [Suspect]
     Active Substance: VITAMINS
     Indication: Parenteral nutrition
     Dosage: LYOPHILIZATE AND SOLUTION FOR PARENTERAL USE
     Route: 042
     Dates: start: 20211127, end: 20220103
  2. SODIUM CHLORIDE [Suspect]
     Active Substance: SODIUM CHLORIDE
     Indication: Parenteral nutrition
     Route: 042
     Dates: start: 20211127, end: 20220103
  3. PHOCYTAN [Suspect]
     Active Substance: .ALPHA.-GLUCOSE-1-PHOSPHATE
     Indication: Parenteral nutrition
     Route: 042
     Dates: start: 20211127, end: 20220103
  4. AMINO ACIDS\DEXTROSE\ELECTROLYTES NOS\SOYBEAN OIL [Suspect]
     Active Substance: AMINO ACIDS\DEXTROSE\ELECTROLYTES NOS\SOYBEAN OIL
     Indication: Parenteral nutrition
     Route: 042
     Dates: start: 20211127, end: 20220103
  5. POTASSIUM CHLORIDE [Suspect]
     Active Substance: POTASSIUM CHLORIDE
     Indication: Parenteral nutrition
     Route: 042
     Dates: start: 20211127, end: 20220103
  6. IRON\MINERALS\POTASSIUM IOD\SODIUM FLUORIDE\SODIUM MOLYBDATE\SODIUM SE [Suspect]
     Active Substance: IRON\MINERALS\POTASSIUM IOD\SODIUM FLUORIDE\SODIUM MOLYBDATE\SODIUM SELENITE\ZINC
     Indication: Parenteral nutrition
     Route: 042
     Dates: start: 20211127, end: 20220103

REACTIONS (2)
  - Cholestasis [Recovered/Resolved]
  - Hepatic cytolysis [Recovered/Resolved]

NARRATIVE: CASE EVENT DATE: 20211207
